FAERS Safety Report 10252603 (Version 1)
Quarter: 2014Q2

REPORT INFORMATION
  Report Type: Spontaneous
  Country: US (occurrence: US)
  Receive Date: 20140623
  Receipt Date: 20140623
  Transmission Date: 20141212
  Serious: No
  Sender: FDA-Public Use
  Company Number: US-B.I. PHARMACEUTICALS,INC./RIDGEFIELD-2014-BI-27000BP

PATIENT
  Age: 80 Year
  Sex: Female
  Weight: 47 kg

DRUGS (10)
  1. COMBIVENT [Suspect]
     Indication: CHRONIC OBSTRUCTIVE PULMONARY DISEASE
     Dosage: DOSE PER APPLICATION: 20 MCG / 100 MCG
     Route: 055
     Dates: start: 2011
  2. AMLODIPINE [Concomitant]
     Indication: HYPERTENSION
     Dosage: 5 MG
     Route: 048
     Dates: start: 2013
  3. BYSTOLIC [Concomitant]
     Indication: HYPERTENSION
     Dosage: 5 MG
     Route: 048
  4. TRICOR [Concomitant]
     Indication: BLOOD CHOLESTEROL INCREASED
     Dosage: 145 MG
     Route: 048
  5. SIMVASTATIN [Concomitant]
     Indication: BLOOD CHOLESTEROL INCREASED
     Dosage: 40 MG
     Route: 048
  6. LEVOTHYROXINE [Concomitant]
     Indication: THYROID OPERATION
     Dosage: 112 MCG
     Route: 048
     Dates: start: 2007
  7. CALCIUM [Concomitant]
     Route: 048
  8. VITAMIN E [Concomitant]
     Route: 048
  9. ANTACID [Concomitant]
     Route: 048
  10. ALBUTEROL [Concomitant]
     Indication: CHRONIC OBSTRUCTIVE PULMONARY DISEASE
     Dosage: DOSE PER APPLICATION: 2.5MG/3ML; DAILY DOSE: 2.5MG/3ML
     Route: 055

REACTIONS (2)
  - Decreased appetite [Recovered/Resolved]
  - Abnormal loss of weight [Not Recovered/Not Resolved]
